FAERS Safety Report 17233011 (Version 1)
Quarter: 2020Q1

REPORT INFORMATION
  Report Type: Spontaneous
  Country: NL (occurrence: NL)
  Receive Date: 20200103
  Receipt Date: 20200103
  Transmission Date: 20200409
  Serious: Yes (Other)
  Sender: FDA-Public Use
  Company Number: NL-TEVA-2019-NL-1161072

PATIENT
  Age: 77 Year
  Sex: Male
  Weight: 85 kg

DRUGS (19)
  1. AMLODIPINE [Concomitant]
     Active Substance: AMLODIPINE BESYLATE
     Dosage: 5 MILLIGRAM DAILY; 1 X PER DAY 1 PIECE
  2. AOV 512 MAGNESIUM AC TABLET 200MG [Concomitant]
     Dosage: 1 TIME A DAY 1 PIECE
  3. ACETYLSALICYLZUUR DISPERTABLET 80MG [Concomitant]
     Active Substance: ASPIRIN
     Dosage: 80 MICROGRAM DAILY; 1 TIME A DAY 1 PIECE
  4. MAGNESIUMHYDROXIDE KAUWTABLET 724MG [Concomitant]
     Dosage: ANTIEMETIC BOX 1; DOSAGE ACCORDING TO SCHEDULE
     Dates: start: 20191021
  5. PARACETAMOL TABLET  500MG [Concomitant]
     Active Substance: ACETAMINOPHEN
     Dosage: 3 X 2 PIECES PER DAY
  6. METOCLOPRAMIDE TABLET 10MG [Concomitant]
     Active Substance: METOCLOPRAMIDE
     Dosage: ANTI-EMETIC BOX 1; DOSAGE ACCORDING TO SCHEDULE
     Dates: start: 20191021
  7. METOPROLOL TABLET MGA  50MG (SUCCINAAT) [Concomitant]
     Dosage: 1 X PER DAY 0.5 PIECE
  8. TIMOLOL OOGGEL 1MG/G [Concomitant]
     Dosage: 1 X PER DAY 1 DROP IN BOTH EYES
  9. TRAVOPROST/TIMOLOL OOGDRUPPELS 40UG/5MG/ML [Concomitant]
     Dosage: 1 GTT DAILY; 1 X PER DAY 1 DROP IN BOTH EYES
  10. PERINDOPRIL TABLET 4MG (ERBUMINE) [Concomitant]
     Dosage: 1 X PER DAY 2 ITEMS
  11. COLECALCIFEROL CAPSULE  25.000IE [Concomitant]
     Dosage: 1 PIECE ONCE A MONTH
  12. PACLITAXEL INFUSIEPOEDER 100MG (NANODEELTJES) [Concomitant]
     Dosage: ONCE A DAY 250 MILIGRAMS ARE ADMINISTERED IN 30 MINUTES
     Dates: start: 20191021
  13. GEMCITABINE. [Suspect]
     Active Substance: GEMCITABINE
     Indication: PANCREATIC CARCINOMA
     Dosage: 1 DOSAGE FORM, 2000MG/500ML
     Dates: start: 20191021, end: 20191021
  14. NITROGLYCERINE SPRAY SUBLING. 0,4MG/DO [Concomitant]
     Dosage: 1 PUFF UNDER THE TONGUE IF NECESSARY
  15. BIONAL VISOLIE CAPSULE [Concomitant]
     Dosage: 1 DOSAGE FORMS DAILY; 1 TIME A DAY 1 PIECE
  16. ATORVASTATINE TABLET 20MG [Concomitant]
     Dosage: 1 X PER DAY 1 PIECE
  17. CLEMASTINE TABLET 1MG [Concomitant]
     Dosage: 2 MILLIGRAM DAILY; 2 X 1 PIECE PER DAY
  18. OMEPRAZOL CAPSULE MSR 20MG [Concomitant]
     Active Substance: OMEPRAZOLE
     Dosage: 20 MILLIGRAM DAILY; 1 TIME A DAY 1 PIECE
  19. MACROGOL/ZOUTEN PDR V DRANK (MOVIC/MOLAX/LAXT/GEN) [Concomitant]
     Dosage: 1 TIME A DAY 1 PIECE

REACTIONS (5)
  - Loss of consciousness [Recovered/Resolved]
  - Retching [Recovered/Resolved]
  - Salivary hypersecretion [Recovered/Resolved]
  - Hypertension [Recovered/Resolved]
  - Erythema [Recovered/Resolved]

NARRATIVE: CASE EVENT DATE: 20191021
